FAERS Safety Report 21819250 (Version 1)
Quarter: 2023Q1

REPORT INFORMATION
  Report Type: Spontaneous
  Country: ES (occurrence: ES)
  Receive Date: 20230104
  Receipt Date: 20230104
  Transmission Date: 20230417
  Serious: Yes (Other)
  Sender: FDA-Public Use
  Company Number: None

PATIENT
  Age: 24 Year
  Sex: Male
  Weight: 74 kg

DRUGS (3)
  1. TOPAMAX [Suspect]
     Active Substance: TOPIRAMATE
     Indication: Migraine
     Route: 048
     Dates: start: 20221203, end: 20221219
  2. PANTOPRAZOL ALMUS [Concomitant]
     Indication: Gastrooesophageal reflux disease
     Dosage: 1-0-0
  3. ACETAMINOPHEN [Concomitant]
     Active Substance: ACETAMINOPHEN
     Indication: Analgesic therapy
     Dosage: 0-0-1

REACTIONS (7)
  - Seizure [Recovered/Resolved]
  - Disturbance in attention [Recovered/Resolved]
  - Bradyphrenia [Recovered/Resolved]
  - Depression [Recovered/Resolved]
  - Confusional state [Recovering/Resolving]
  - Anxiety [Recovering/Resolving]
  - Amnesia [Recovered/Resolved]

NARRATIVE: CASE EVENT DATE: 20221204
